FAERS Safety Report 4958315-4 (Version None)
Quarter: 2006Q1

REPORT INFORMATION
  Report Type: 
  Country: None (occurrence: None)
  Receive Date: 20060330
  Receipt Date: 20060321
  Transmission Date: 20060701
  Serious: Yes (Other)
  Sender: FDA-Public Use
  Company Number: GB-SANOFI-SYNTHELABO-A01200602248

PATIENT
  Age: 73 Year
  Sex: Male

DRUGS (3)
  1. CLOPIDOGREL [Suspect]
     Indication: ANGINA PECTORIS
     Route: 048
     Dates: start: 20050801, end: 20050815
  2. OMEPRAZOLE [Concomitant]
     Indication: DYSPEPSIA
     Route: 048
     Dates: start: 20040101
  3. ASPIRIN [Concomitant]
     Indication: ANGINA PECTORIS
     Route: 048
     Dates: start: 20050101, end: 20050801

REACTIONS (2)
  - CONDITION AGGRAVATED [None]
  - UVEITIS [None]
